FAERS Safety Report 7058436-9 (Version None)
Quarter: 2010Q4

REPORT INFORMATION
  Report Type: 
  Country: None (occurrence: None)
  Receive Date: 20101021
  Receipt Date: 20101021
  Transmission Date: 20110411
  Serious: No
  Sender: FDA-Public Use
  Company Number: None

PATIENT
  Age: 89 Year
  Sex: Male
  Weight: 81 kg

DRUGS (15)
  1. LEVAQUIN [Suspect]
     Indication: PNEUMONIA
     Dosage: 750 MG Q24H IV
     Route: 042
     Dates: start: 20100710, end: 20100712
  2. CLEOCIN [Concomitant]
  3. ROCEPHIN [Concomitant]
  4. DUONEB [Concomitant]
  5. HALPRIN [Concomitant]
  6. LOVENOX [Concomitant]
  7. MUCINEX [Concomitant]
  8. NORVASC [Concomitant]
  9. PRILOSEC [Concomitant]
  10. PROSCAR [Concomitant]
  11. ZOCOR [Concomitant]
  12. TYLENOL [Concomitant]
  13. VICODIN [Concomitant]
  14. ZOFRAN [Concomitant]
  15. ZITROMAX [Concomitant]

REACTIONS (2)
  - HALLUCINATION [None]
  - PRURITUS [None]
